FAERS Safety Report 18487352 (Version 1)
Quarter: 2020Q4

REPORT INFORMATION
  Report Type: Report from Study
  Country: None (occurrence: US)
  Receive Date: 20201110
  Receipt Date: 20201110
  Transmission Date: 20210114
  Serious: Yes (Other)
  Sender: FDA-Public Use
  Company Number: US-ABBVIE-20K-163-3641114-00

PATIENT
  Sex: Female

DRUGS (1)
  1. VENCLEXTA [Suspect]
     Active Substance: VENETOCLAX
     Indication: OVARIAN CANCER
     Route: 048
     Dates: start: 20201021

REACTIONS (6)
  - Chemotherapy [Unknown]
  - Pain in extremity [Unknown]
  - Decreased activity [Unknown]
  - Headache [Unknown]
  - White blood cell count decreased [Unknown]
  - Asthenia [Unknown]

NARRATIVE: CASE EVENT DATE: 2020
